FAERS Safety Report 9395639 (Version 1)
Quarter: 2013Q3

REPORT INFORMATION
  Report Type: Spontaneous
  Country: GB (occurrence: GB)
  Receive Date: 20130711
  Receipt Date: 20130711
  Transmission Date: 20140515
  Serious: Yes (Other)
  Sender: FDA-Public Use
  Company Number: PHFR2013GB000506

PATIENT
  Age: 41 Year
  Sex: Male

DRUGS (2)
  1. TERBINAFINE [Suspect]
     Dosage: 250 MG, QD
     Route: 048
     Dates: start: 20120903, end: 20121130
  2. PREGABALIN [Concomitant]
     Indication: NEURALGIA
     Route: 048
     Dates: start: 20100826

REACTIONS (3)
  - Mood swings [Recovered/Resolved]
  - Headache [Recovered/Resolved]
  - Quality of life decreased [Unknown]
